FAERS Safety Report 16506113 (Version 1)
Quarter: 2019Q3

REPORT INFORMATION
  Report Type: Spontaneous
  Country: US (occurrence: US)
  Receive Date: 20190520
  Receipt Date: 20190520
  Transmission Date: 20191004
  Serious: Yes (Life-Threatening, Hospitalization)
  Sender: FDA-Public Use
  Company Number: None

PATIENT
  Age: 63 Year
  Sex: Female
  Weight: 82.55 kg

DRUGS (20)
  1. METHOTREXATE SODIUM. [Concomitant]
     Active Substance: METHOTREXATE SODIUM
  2. EXCEDRIN MIGRAINE [Concomitant]
     Active Substance: ACETAMINOPHEN\ASPIRIN\CAFFEINE
  3. COUMADIN [Suspect]
     Active Substance: WARFARIN SODIUM
     Indication: ANTIPHOSPHOLIPID SYNDROME
     Route: 048
  4. MAGNESIUM GLYCINATE [Concomitant]
     Active Substance: MAGNESIUM GLYCINATE
  5. NORCO [Concomitant]
     Active Substance: ACETAMINOPHEN\HYDROCODONE BITARTRATE
  6. PREDNISONE. [Concomitant]
     Active Substance: PREDNISONE
  7. ESTRADIOL. [Concomitant]
     Active Substance: ESTRADIOL
  8. COUMADIN [Suspect]
     Active Substance: WARFARIN SODIUM
     Indication: CEREBROVASCULAR ACCIDENT
  9. FISH OIL CONCENTRATE [Concomitant]
     Active Substance: FISH OIL
  10. OMEPRAZOLE. [Concomitant]
     Active Substance: OMEPRAZOLE
  11. AMILTRIPTYLINE [Concomitant]
  12. PRESERVISION LUTEIN [Concomitant]
     Active Substance: MINERALS\VITAMINS
  13. CYMBALTA [Concomitant]
     Active Substance: DULOXETINE HYDROCHLORIDE
  14. DOFETILIDE. [Concomitant]
     Active Substance: DOFETILIDE
  15. COUMADIN [Suspect]
     Active Substance: WARFARIN SODIUM
     Indication: PULMONARY EMBOLISM
  16. OMEPRAZOLE. [Concomitant]
     Active Substance: OMEPRAZOLE
  17. TOPIMATE [Concomitant]
     Active Substance: TOPIRAMATE
  18. COUMADIN [Suspect]
     Active Substance: WARFARIN SODIUM
     Indication: DEEP VEIN THROMBOSIS
  19. CARDIZEM CD [Concomitant]
     Active Substance: DILTIAZEM HYDROCHLORIDE
  20. ATORVASTATIN [Concomitant]
     Active Substance: ATORVASTATIN

REACTIONS (4)
  - Vaginal haemorrhage [None]
  - Shock haemorrhagic [None]
  - Post procedural haemorrhage [None]
  - Hypotension [None]
